FAERS Safety Report 10175181 (Version 1)
Quarter: 2014Q2

REPORT INFORMATION
  Report Type: Spontaneous
  Country: US (occurrence: US)
  Receive Date: 20140515
  Receipt Date: 20140515
  Transmission Date: 20141212
  Serious: No
  Sender: FDA-Public Use
  Company Number: US-VIVUS-2014V1000055

PATIENT
  Sex: Female
  Weight: 81.27 kg

DRUGS (10)
  1. QSYMIA 7.5MG/46MG [Suspect]
     Indication: WEIGHT DECREASED
     Route: 048
     Dates: start: 201210
  2. QSYMIA 7.5MG/46MG [Suspect]
     Indication: DIABETES MELLITUS
  3. QSYMIA 7.5MG/46MG [Suspect]
     Indication: HYPERTENSION
  4. QSYMIA 3.75MG/23MG [Suspect]
     Indication: WEIGHT DECREASED
     Route: 048
     Dates: start: 2012, end: 2012
  5. QSYMIA 3.75MG/23MG [Suspect]
     Indication: DIABETES MELLITUS
  6. QSYMIA 3.75MG/23MG [Suspect]
     Indication: HYPERTENSION
  7. METFORMIN [Concomitant]
     Indication: DIABETES MELLITUS
     Dosage: DOSAGE LOWERED
     Route: 048
  8. GENUVIA [Concomitant]
     Indication: DIABETES MELLITUS
     Dosage: DOSAGE LOWERED
     Route: 048
  9. BLOOD PRESSURE MEDICATION [Concomitant]
     Indication: HYPERTENSION
     Dosage: CUT IN HALF
     Route: 048
  10. ATORVASTATIN [Concomitant]
     Indication: BLOOD CHOLESTEROL INCREASED
     Route: 048

REACTIONS (2)
  - Blood cholesterol increased [Not Recovered/Not Resolved]
  - Memory impairment [Not Recovered/Not Resolved]
